FAERS Safety Report 6534444-9 (Version None)
Quarter: 2010Q1

REPORT INFORMATION
  Report Type: 
  Country: None (occurrence: None)
  Receive Date: 20100112
  Receipt Date: 20100102
  Transmission Date: 20100710
  Serious: No
  Sender: FDA-Public Use
  Company Number: US-B.I. PHARMACEUTICALS,INC./RIDGEFIELD-2010-BP-00116BP

PATIENT
  Age: 67 Year
  Sex: Female

DRUGS (5)
  1. SPIRIVA [Suspect]
     Indication: EMPHYSEMA
     Dosage: 18 MCG
     Route: 055
     Dates: start: 20091101
  2. MULTI-VITAMINS [Concomitant]
     Indication: VITAMIN SUPPLEMENTATION
  3. CALCIUM [Concomitant]
     Indication: SUPPLEMENTATION THERAPY
  4. SEREVENT [Concomitant]
     Indication: EMPHYSEMA
     Dates: end: 20091101
  5. PROVENTIL [Concomitant]
     Indication: EMPHYSEMA
     Route: 055

REACTIONS (2)
  - EMPHYSEMA [None]
  - NASOPHARYNGITIS [None]
